FAERS Safety Report 11920034 (Version 2)
Quarter: 2016Q1

REPORT INFORMATION
  Report Type: Spontaneous
  Country: AU (occurrence: AU)
  Receive Date: 20160115
  Receipt Date: 20160119
  Transmission Date: 20160526
  Serious: Yes (Other)
  Sender: FDA-Public Use
  Company Number: AU-PFIZER INC-2016015988

PATIENT
  Age: 35 Year
  Sex: Female

DRUGS (1)
  1. XELJANZ [Suspect]
     Active Substance: TOFACITINIB CITRATE
     Indication: RHEUMATOID ARTHRITIS
     Dosage: 5 MG, 2X/DAY
     Dates: start: 20151006, end: 20151204

REACTIONS (3)
  - Thrombosis [Recovered/Resolved]
  - Intestinal ischaemia [Recovered/Resolved]
  - Renal vascular thrombosis [Recovered/Resolved]

NARRATIVE: CASE EVENT DATE: 20151204
